FAERS Safety Report 6464526-1 (Version None)
Quarter: 2009Q4

REPORT INFORMATION
  Report Type: 
  Country: None (occurrence: None)
  Receive Date: 20091201
  Receipt Date: 20091120
  Transmission Date: 20100525
  Serious: Yes (Death, Life-Threatening)
  Sender: FDA-Public Use
  Company Number: US-PFIZER INC-2009301214

PATIENT
  Sex: Male
  Weight: 103.4 kg

DRUGS (11)
  1. IDARUBICIN HCL [Suspect]
     Indication: ACUTE MYELOID LEUKAEMIA
     Dosage: 12 MG/M2, UNK
     Route: 042
     Dates: start: 20091009
  2. CYTARABINE [Suspect]
     Indication: ACUTE MYELOID LEUKAEMIA
     Dosage: 1.5 DF, UNK
     Route: 042
     Dates: start: 20091009
  3. NOVOLOG [Concomitant]
     Dosage: UNK
     Dates: start: 20091101
  4. ACYCLOVIR [Concomitant]
     Dosage: UNK
     Dates: start: 20091005
  5. AZTREONAM [Concomitant]
     Dosage: UNK
     Dates: start: 20091018
  6. OXYGEN [Concomitant]
  7. VANCOMYCIN [Concomitant]
     Dosage: UNK
     Dates: start: 20091019
  8. VORICONAZOLE [Concomitant]
     Dosage: UNK
     Dates: start: 20091029
  9. LASIX [Concomitant]
     Dosage: UNK
     Dates: start: 20091031
  10. PANTOPRAZOLE [Concomitant]
     Dosage: UNK
     Dates: start: 20091005
  11. FILGRASTIM [Concomitant]
     Dosage: UNK
     Dates: start: 20091102

REACTIONS (31)
  - ALANINE AMINOTRANSFERASE INCREASED [None]
  - ASPARTATE AMINOTRANSFERASE INCREASED [None]
  - ATELECTASIS [None]
  - BLOOD ALBUMIN DECREASED [None]
  - BLOOD FIBRINOGEN INCREASED [None]
  - BLOOD GLUCOSE INCREASED [None]
  - BLOOD PHOSPHORUS DECREASED [None]
  - CARDIAC DISORDER [None]
  - CARDIAC FAILURE CONGESTIVE [None]
  - CEREBRAL INFARCTION [None]
  - FIBRIN D DIMER INCREASED [None]
  - HAEMOGLOBIN DECREASED [None]
  - HAEMORRHAGIC STROKE [None]
  - HAEMORRHAGIC TRANSFORMATION STROKE [None]
  - HYPOXIA [None]
  - ILEUS [None]
  - INTERNATIONAL NORMALISED RATIO INCREASED [None]
  - INTESTINAL DILATATION [None]
  - LUNG INFECTION [None]
  - NEUTROPHIL COUNT DECREASED [None]
  - PARATHYROID DISORDER [None]
  - PLATELET COUNT DECREASED [None]
  - PLEURAL EFFUSION [None]
  - PNEUMOTHORAX [None]
  - PROTHROMBIN TIME PROLONGED [None]
  - PULMONARY ARTERIAL HYPERTENSION [None]
  - PULMONARY OEDEMA [None]
  - RESPIRATORY FAILURE [None]
  - SUBCUTANEOUS EMPHYSEMA [None]
  - TROPONIN INCREASED [None]
  - WHITE BLOOD CELL COUNT DECREASED [None]
